FAERS Safety Report 4646020-3 (Version None)
Quarter: 2005Q2

REPORT INFORMATION
  Report Type: 
  Country: None (occurrence: None)
  Receive Date: 20050425
  Receipt Date: 20050413
  Transmission Date: 20051028
  Serious: Yes (Death, Other)
  Sender: FDA-Public Use
  Company Number: 2005059744

PATIENT
  Age: 86 Year
  Sex: Female
  Weight: 80 kg

DRUGS (13)
  1. BEXTRA [Suspect]
     Indication: ILL-DEFINED DISORDER
     Dosage: 40 MG (40 MG, 1 IN 1 D), ORAL
     Route: 048
     Dates: start: 20041101, end: 20050406
  2. LYRICA [Suspect]
     Indication: NEUROPATHIC PAIN
     Dosage: 225 MG (2 IN 1 D), ORAL
     Route: 048
     Dates: start: 20041101, end: 20050406
  3. METHENAMINE HIPPURATE (METHENAMINE HIPPURATE) [Concomitant]
  4. ZOPICLONE (ZOPICLONE) [Concomitant]
  5. LANSOPRAZOLE [Concomitant]
  6. WARFARIN SODIUM [Concomitant]
  7. SERETIDE MITE (FLUTICASONE PROPIONATE, SALMETEROL XINAFOATE) [Concomitant]
  8. PERINDOPRIL (PERINDOPRIL) [Concomitant]
  9. AMITRIPTYLINE HYDROCHLORIDE [Concomitant]
  10. ALPRAAOLAM (ALPRAZOLAM) [Concomitant]
  11. FUROSEMIDE [Concomitant]
  12. PRAVASTATIN SODIUM (0RAVASTATIN SODIUM) [Concomitant]
  13. METOPROLOL SUCCINATE (METHOPROLOL SUCCINATE) [Concomitant]

REACTIONS (2)
  - CARDIAC FAILURE [None]
  - CONDITION AGGRAVATED [None]
